FAERS Safety Report 21568383 (Version 2)
Quarter: 2022Q4

REPORT INFORMATION
  Report Type: Spontaneous
  Country: None (occurrence: SE)
  Receive Date: 20221108
  Receipt Date: 20221212
  Transmission Date: 20230113
  Serious: Yes (Other)
  Sender: FDA-Public Use
  Company Number: SE-Hill Dermaceuticals, Inc.-2134648

PATIENT
  Age: 53 Year
  Sex: Male

DRUGS (1)
  1. TOLAK [Suspect]
     Active Substance: FLUOROURACIL
     Indication: Actinic keratosis
     Route: 061
     Dates: start: 20221015, end: 20221113

REACTIONS (2)
  - Haematochezia [Unknown]
  - Application site reaction [Unknown]

NARRATIVE: CASE EVENT DATE: 20221130
